FAERS Safety Report 11488493 (Version 1)
Quarter: 2015Q3

REPORT INFORMATION
  Report Type: Spontaneous
  Country: US (occurrence: US)
  Receive Date: 20150910
  Receipt Date: 20150910
  Transmission Date: 20151125
  Serious: No
  Sender: FDA-Public Use
  Company Number: US-ROCHE-1240911

PATIENT
  Age: 28 Year
  Sex: Female

DRUGS (3)
  1. COPEGUS [Suspect]
     Active Substance: RIBAVIRIN
     Indication: CHRONIC HEPATITIS C
     Route: 048
     Dates: start: 20130510
  2. PEGASYS [Suspect]
     Active Substance: PEGINTERFERON ALFA-2A
     Indication: CHRONIC HEPATITIS C
     Route: 065
     Dates: start: 20130510
  3. INCIVEK [Suspect]
     Active Substance: TELAPREVIR
     Indication: CHRONIC HEPATITIS C
     Route: 065
     Dates: start: 20130510

REACTIONS (14)
  - Nausea [Unknown]
  - Fatigue [Unknown]
  - Haemorrhoids [Unknown]
  - Injection site rash [Recovered/Resolved]
  - Decreased appetite [Unknown]
  - Red blood cell count decreased [Unknown]
  - Skin fissures [Unknown]
  - Pruritus [Unknown]
  - Dry skin [Unknown]
  - Dyspepsia [Unknown]
  - Ear infection [Unknown]
  - Psychomotor hyperactivity [Unknown]
  - White blood cell count decreased [Unknown]
  - Hypothyroidism [Unknown]

NARRATIVE: CASE EVENT DATE: 20130510
